FAERS Safety Report 18486762 (Version 1)
Quarter: 2020Q4

REPORT INFORMATION
  Report Type: Spontaneous
  Country: GB (occurrence: GB)
  Receive Date: 20201110
  Receipt Date: 20201110
  Transmission Date: 20210114
  Serious: Yes (Life-Threatening, Disabling, Other)
  Sender: FDA-Public Use
  Company Number: GB-PFIZER INC-2020436972

PATIENT
  Age: 55 Year
  Sex: Female
  Weight: 66 kg

DRUGS (3)
  1. LORVIQUA [Suspect]
     Active Substance: LORLATINIB
     Indication: NEOPLASM MALIGNANT
     Dosage: 100 MG
     Route: 048
     Dates: start: 20200824, end: 20201009
  2. ALECTINIB. [Concomitant]
     Active Substance: ALECTINIB
     Dosage: UNK
  3. INFLUENZA VIRUS [Suspect]
     Active Substance: INFLUENZA VIRUS VACCINE
     Indication: INFLUENZA IMMUNISATION
     Dosage: UNK
     Dates: start: 20200926, end: 20200926

REACTIONS (11)
  - Limb discomfort [Recovered/Resolved]
  - Irritability [Recovering/Resolving]
  - Mood swings [Recovering/Resolving]
  - Depressed mood [Not Recovered/Not Resolved]
  - Abnormal dreams [Not Recovered/Not Resolved]
  - Hallucination, auditory [Unknown]
  - Euphoric mood [Recovered/Resolved]
  - Anal incontinence [Recovered/Resolved]
  - Hyperventilation [Recovered/Resolved]
  - Loss of consciousness [Unknown]
  - Delusion [Recovered/Resolved]

NARRATIVE: CASE EVENT DATE: 20200923
